FAERS Safety Report 6640092-2 (Version None)
Quarter: 2010Q1

REPORT INFORMATION
  Report Type: 
  Country: None (occurrence: None)
  Receive Date: 20100318
  Receipt Date: 20100312
  Transmission Date: 20100710
  Serious: Yes (Hospitalization, Other)
  Sender: FDA-Public Use
  Company Number: FR-ROCHE-389456

PATIENT
  Age: 17 Year
  Sex: Male

DRUGS (2)
  1. ROACCUTANE [Suspect]
     Indication: ACNE
     Route: 048
     Dates: start: 20030901, end: 20040301
  2. ROACCUTANE [Suspect]
     Route: 048
     Dates: start: 20041015, end: 20041101

REACTIONS (4)
  - AGGRESSION [None]
  - ANXIETY [None]
  - DEPRESSION [None]
  - SUICIDE ATTEMPT [None]
